FAERS Safety Report 19407092 (Version 7)
Quarter: 2022Q4

REPORT INFORMATION
  Report Type: Report from Study
  Country: US (occurrence: US)
  Receive Date: 20210611
  Receipt Date: 20221028
  Transmission Date: 20230113
  Serious: Yes (Other)
  Sender: FDA-Public Use
  Company Number: US-TAKEDA-2021TUS029486

PATIENT
  Sex: Female
  Weight: 122 kg

DRUGS (25)
  1. HUMAN IMMUNOGLOBULIN G [Suspect]
     Active Substance: HUMAN IMMUNOGLOBULIN G
     Indication: Immunodeficiency common variable
     Dosage: 10 GRAM, Q2WEEKS
     Route: 058
     Dates: start: 20210218
  2. HUMAN IMMUNOGLOBULIN G [Suspect]
     Active Substance: HUMAN IMMUNOGLOBULIN G
     Dosage: 12 GRAM, Q2WEEKS
     Route: 058
     Dates: start: 20210218
  3. HUMAN IMMUNOGLOBULIN G [Suspect]
     Active Substance: HUMAN IMMUNOGLOBULIN G
     Dosage: 16 GRAM, Q2WEEKS
     Route: 058
     Dates: start: 20210218
  4. HUMAN IMMUNOGLOBULIN G [Suspect]
     Active Substance: HUMAN IMMUNOGLOBULIN G
     Dosage: 20 GRAM, Q2WEEKS
     Route: 058
     Dates: start: 20210218
  5. ADDERALL [Concomitant]
     Active Substance: AMPHETAMINE ASPARTATE\AMPHETAMINE SULFATE\DEXTROAMPHETAMINE SACCHARATE\DEXTROAMPHETAMINE SULFATE
  6. NARATRIPTAN [Concomitant]
     Active Substance: NARATRIPTAN HYDROCHLORIDE
  7. TRIAMCINOLONE [Concomitant]
     Active Substance: TRIAMCINOLONE
  8. SYMBICORT [Concomitant]
     Active Substance: BUDESONIDE\FORMOTEROL FUMARATE DIHYDRATE
  9. ALPRAZOLAM [Concomitant]
     Active Substance: ALPRAZOLAM
  10. MECLIZINE HYDROCHLORIDE [Concomitant]
     Active Substance: MECLIZINE HYDROCHLORIDE
  11. ACETAMINOPHEN [Concomitant]
     Active Substance: ACETAMINOPHEN
  12. DIPHENHYDRAMINE [Concomitant]
     Active Substance: DIPHENHYDRAMINE
  13. LIDOCAINE [Concomitant]
     Active Substance: LIDOCAINE
  14. EPINEPHRINE [Concomitant]
     Active Substance: EPINEPHRINE
  15. DIETARY SUPPLEMENT\HERBALS [Concomitant]
     Active Substance: DIETARY SUPPLEMENT\HERBALS
  16. FAMOTIDINE [Concomitant]
     Active Substance: FAMOTIDINE
  17. MUCINEX [Concomitant]
     Active Substance: GUAIFENESIN
  18. BENZONATATE [Concomitant]
     Active Substance: BENZONATATE
  19. FLUTICASONE PROPIONATE [Concomitant]
     Active Substance: FLUTICASONE PROPIONATE
  20. FEXOFENADINE [Concomitant]
     Active Substance: FEXOFENADINE HYDROCHLORIDE
  21. GLUCOPHAGE [Concomitant]
     Active Substance: METFORMIN HYDROCHLORIDE
  22. ATENOLOL [Concomitant]
     Active Substance: ATENOLOL
  23. MONTELUKAST SODIUM [Concomitant]
     Active Substance: MONTELUKAST SODIUM
  24. CRESTOR [Concomitant]
     Active Substance: ROSUVASTATIN CALCIUM
  25. EUCERIN [SALICYLIC ACID] [Concomitant]

REACTIONS (10)
  - Cellulitis [Unknown]
  - Abscess fungal [Unknown]
  - Sinusitis [Unknown]
  - Urinary tract infection [Unknown]
  - Infection [Not Recovered/Not Resolved]
  - Immunoglobulins decreased [Unknown]
  - Upper respiratory tract infection [Not Recovered/Not Resolved]
  - Influenza like illness [Unknown]
  - Infusion site pain [Unknown]
  - Pruritus [Recovered/Resolved]
